FAERS Safety Report 21715805 (Version 3)
Quarter: 2024Q1

REPORT INFORMATION
  Report Type: Spontaneous
  Country: JP (occurrence: JP)
  Receive Date: 20221212
  Receipt Date: 20240308
  Transmission Date: 20240410
  Serious: Yes (Hospitalization, Other)
  Sender: FDA-Public Use
  Company Number: JP-OTSUKA-2022_054324

PATIENT
  Age: 47 Year
  Sex: Male

DRUGS (10)
  1. ABILIFY [Suspect]
     Active Substance: ARIPIPRAZOLE
     Indication: Schizophrenia
     Dosage: OVERDOSED
     Route: 048
     Dates: start: 20191103, end: 20191103
  2. ABILIFY [Suspect]
     Active Substance: ARIPIPRAZOLE
     Dosage: 6MG/DAY
     Route: 048
     Dates: start: 20120404, end: 20190528
  3. ABILIFY [Suspect]
     Active Substance: ARIPIPRAZOLE
     Dosage: 18MG/DAY
     Route: 048
     Dates: start: 201911, end: 201911
  4. ZYPREXA [Suspect]
     Active Substance: OLANZAPINE
     Indication: Schizophrenia
     Dosage: OVERDOSED
     Route: 048
     Dates: start: 20191103, end: 20191103
  5. ZYPREXA [Suspect]
     Active Substance: OLANZAPINE
     Dosage: 2.5MG/DAY
     Route: 048
     Dates: start: 20170329, end: 20190528
  6. ZYPREXA [Suspect]
     Active Substance: OLANZAPINE
     Dosage: 5MG/DAY
     Route: 048
     Dates: start: 20190529, end: 20191102
  7. ZYPREXA [Suspect]
     Active Substance: OLANZAPINE
     Dosage: 10MG/DAY
     Route: 048
     Dates: start: 201911, end: 201911
  8. AMOXAPINE [Suspect]
     Active Substance: AMOXAPINE
     Indication: Product used for unknown indication
     Dosage: 100MG/DAY
     Route: 048
     Dates: start: 20190529, end: 20191103
  9. CLOXAZOLAM [Suspect]
     Active Substance: CLOXAZOLAM
     Indication: Product used for unknown indication
     Dosage: OVERDOSED
     Route: 048
     Dates: start: 20191103, end: 20191103
  10. CLOXAZOLAM [Suspect]
     Active Substance: CLOXAZOLAM
     Dosage: 2MG/DAY
     Route: 048
     Dates: start: 20111026, end: 20191102

REACTIONS (10)
  - Loss of consciousness [Unknown]
  - Hallucination, auditory [Recovering/Resolving]
  - Suicidal ideation [Recovering/Resolving]
  - Suicide attempt [Recovering/Resolving]
  - Persecutory delusion [Recovering/Resolving]
  - Somnolence [Unknown]
  - Overdose [Unknown]
  - Alcohol use [Unknown]
  - Treatment noncompliance [Unknown]
  - Therapy interrupted [Unknown]

NARRATIVE: CASE EVENT DATE: 20190528
